FAERS Safety Report 9433521 (Version 3)
Quarter: 2013Q3

REPORT INFORMATION
  Report Type: Spontaneous
  Country: US (occurrence: US)
  Receive Date: 20130731
  Receipt Date: 20130913
  Transmission Date: 20140515
  Serious: Yes (Other)
  Sender: FDA-Public Use
  Company Number: US-JNJFOC-20130714613

PATIENT
  Age: 63 Year
  Sex: Male
  Weight: 153.77 kg

DRUGS (15)
  1. INVOKANA [Suspect]
     Indication: TYPE 2 DIABETES MELLITUS
     Route: 048
     Dates: start: 20130718
  2. INVOKANA [Suspect]
     Indication: TYPE 2 DIABETES MELLITUS
     Route: 048
     Dates: start: 20130711, end: 20130717
  3. IMODIUM [Suspect]
  4. IMODIUM [Suspect]
     Indication: DIARRHOEA
  5. LOMOTIL [Suspect]
     Indication: DIARRHOEA
  6. KAOPECTATE (ANTIDIARRHEAL) [Suspect]
     Indication: DIARRHOEA
  7. METFORMIN 500 [Concomitant]
     Indication: DIABETES MELLITUS
  8. SINGULAIR [Concomitant]
     Indication: ASTHMA
  9. XANAX [Concomitant]
     Indication: POST-TRAUMATIC STRESS DISORDER
  10. ATENOLOL [Concomitant]
  11. LISINOPRIL [Concomitant]
  12. TRICOR [Concomitant]
     Indication: BLOOD CHOLESTEROL INCREASED
  13. LESCOL (FLUVASTATIN SODIUM) [Concomitant]
     Indication: BLOOD TRIGLYCERIDES INCREASED
  14. ADVAIR [Concomitant]
     Indication: CHRONIC OBSTRUCTIVE PULMONARY DISEASE
     Dosage: 500/50
  15. ALBUTEROL [Concomitant]

REACTIONS (6)
  - Abnormal loss of weight [Recovered/Resolved]
  - Viral diarrhoea [Recovered/Resolved]
  - Decreased appetite [Recovering/Resolving]
  - Adverse event [Unknown]
  - Drug ineffective [Unknown]
  - Nervousness [Recovering/Resolving]
